FAERS Safety Report 17693984 (Version 1)
Quarter: 2020Q2

REPORT INFORMATION
  Report Type: Spontaneous
  Country: DE (occurrence: DE)
  Receive Date: 20200422
  Receipt Date: 20200422
  Transmission Date: 20200714
  Serious: Yes (Hospitalization, Other)
  Sender: FDA-Public Use
  Company Number: DE-JNJFOC-20200420113

PATIENT
  Age: 76 Year
  Sex: Male
  Weight: 100 kg

DRUGS (6)
  1. CARVEDILOL. [Concomitant]
     Active Substance: CARVEDILOL
     Dosage: 25 MG, 0.5-0-0.5-0
  2. METFORMIN [Concomitant]
     Active Substance: METFORMIN HYDROCHLORIDE
     Dosage: 500 MG, 1-0-1-0
  3. CANDESARTAN. [Concomitant]
     Active Substance: CANDESARTAN
     Dosage: 16 MG, 1-0-1-0
  4. EPLERENONE. [Concomitant]
     Active Substance: EPLERENONE
     Dosage: 25 MG, 2-0-0-0
  5. FINASTERID [Concomitant]
     Active Substance: FINASTERIDE
     Dosage: 5 MG, 0-0-1-0
  6. RIVAROXABAN [Suspect]
     Active Substance: RIVAROXABAN
     Indication: PRODUCT USED FOR UNKNOWN INDICATION
     Dosage: NK MG, NK
     Route: 048

REACTIONS (4)
  - Dyspnoea [Unknown]
  - Cardiac failure chronic [Unknown]
  - Peripheral swelling [Unknown]
  - Dyspnoea exertional [Unknown]
